FAERS Safety Report 20517580 (Version 1)
Quarter: 2022Q1

REPORT INFORMATION
  Report Type: Spontaneous
  Country: US (occurrence: None)
  Receive Date: 20220224
  Receipt Date: 20220224
  Transmission Date: 20220423
  Serious: Yes (unspecified)
  Sender: FDA-Public Use
  Company Number: None

PATIENT
  Age: 33 Year
  Sex: Female
  Weight: 87.75 kg

DRUGS (2)
  1. AMBRISENTAN [Suspect]
     Active Substance: AMBRISENTAN
     Indication: Pulmonary arterial hypertension
     Dosage: FREQUENCY : DAILY;?
     Route: 048
     Dates: start: 20220128
  2. SILDENAFIL [Concomitant]
     Active Substance: SILDENAFIL
     Dates: start: 20220114

REACTIONS (3)
  - Fluid retention [None]
  - Weight increased [None]
  - Chest discomfort [None]

NARRATIVE: CASE EVENT DATE: 20220223
